FAERS Safety Report 26120602 (Version 1)
Quarter: 2025Q4

REPORT INFORMATION
  Report Type: Report from Study
  Country: US (occurrence: US)
  Receive Date: 20251204
  Receipt Date: 20251204
  Transmission Date: 20260117
  Serious: Yes (Other)
  Sender: ACADIA PHARMACEUTICALS
  Company Number: US-ACADIA PHARMACEUTICALS INC.-ACA-2025-PIM-012862

PATIENT
  Sex: Male

DRUGS (8)
  1. NUPLAZID [Suspect]
     Active Substance: PIMAVANSERIN TARTRATE
     Indication: Product used for unknown indication
     Dosage: 34 MILLIGRAM, QD
     Route: 048
     Dates: start: 20240906
  2. ASPIRIN [Concomitant]
     Active Substance: ASPIRIN
  3. CELECOXIB [Concomitant]
     Active Substance: CELECOXIB
  4. MAGNESIUM [Concomitant]
     Active Substance: MAGNESIUM
  5. VITAMINS [Concomitant]
     Active Substance: VITAMINS
     Dosage: UNK (ADLT 50 PLUS)
  6. QUETIAPINE [Concomitant]
     Active Substance: QUETIAPINE
  7. RIBOFLAVIN [Concomitant]
     Active Substance: RIBOFLAVIN
  8. SERTRALINE [Concomitant]
     Active Substance: SERTRALINE HYDROCHLORIDE

REACTIONS (3)
  - Hallucination [Unknown]
  - Confusional state [Unknown]
  - Constipation [Unknown]
